FAERS Safety Report 11239328 (Version 1)
Quarter: 2015Q3

REPORT INFORMATION
  Report Type: Spontaneous
  Country: US (occurrence: None)
  Receive Date: 20150701
  Receipt Date: 20150701
  Transmission Date: 20151125
  Serious: No
  Sender: FDA-Public Use
  Company Number: None

PATIENT
  Age: 82 Year
  Sex: Male
  Weight: 83.92 kg

DRUGS (10)
  1. IMDUR [Concomitant]
     Active Substance: ISOSORBIDE MONONITRATE
  2. ASPIRIN. [Concomitant]
     Active Substance: ASPIRIN
  3. VITAMIN [Concomitant]
     Active Substance: VITAMINS
  4. FLOMAX [Concomitant]
     Active Substance: TAMSULOSIN HYDROCHLORIDE
  5. AVAPRO [Suspect]
     Active Substance: IRBESARTAN
     Indication: HYPERTENSION
     Dosage: 1 PILL
     Route: 048
     Dates: start: 20140910
  6. CRESTOR [Concomitant]
     Active Substance: ROSUVASTATIN CALCIUM
  7. PLAVIX [Concomitant]
     Active Substance: CLOPIDOGREL BISULFATE
  8. FISH OIL [Concomitant]
     Active Substance: FISH OIL
  9. COREG [Concomitant]
     Active Substance: CARVEDILOL
  10. ZETIA [Concomitant]
     Active Substance: EZETIMIBE

REACTIONS (9)
  - Dysphonia [None]
  - Weight decreased [None]
  - Back pain [None]
  - Myalgia [None]
  - Lethargy [None]
  - Fatigue [None]
  - Pharyngeal disorder [None]
  - Decreased appetite [None]
  - Gait disturbance [None]
